FAERS Safety Report 9528951 (Version 1)
Quarter: 2013Q2

REPORT INFORMATION
  Report Type: Spontaneous
  Country: US (occurrence: None)
  Receive Date: 20130401
  Receipt Date: 20130401
  Transmission Date: 20140414
  Serious: Yes (Hospitalization)
  Sender: FDA-Public Use
  Company Number: PHEH2012US025677

PATIENT
  Age: 83 Year
  Sex: Female

DRUGS (6)
  1. EXELON PATCH (RIVASTIGMINE) TRANS-THERAPEUTIC SYSTEM [Suspect]
     Route: 062
  2. NEXIUM (AMOXICILLIN TRIHYDRATE, CLARITHROMYCIN, ESOMEPRAZOLE MAGNESIUM) [Concomitant]
  3. ASPIRIN (ACETYLSALICYLIC ACID) [Concomitant]
  4. LORAZEPAM [Concomitant]
  5. MULTI-VITAMINS (CALCIUM PANTOTHENATE, FOLIC ACID, VITAMINS NOS) [Concomitant]
  6. MELATONIN [Concomitant]

REACTIONS (2)
  - Abdominal pain upper [None]
  - Hypertension [None]
